FAERS Safety Report 20404075 (Version 9)
Quarter: 2024Q4

REPORT INFORMATION
  Report Type: Report from Study
  Country: DE (occurrence: DE)
  Receive Date: 20220131
  Receipt Date: 20241127
  Transmission Date: 20250115
  Serious: No
  Sender: ROCHE
  Company Number: DE-ROCHE-2748054

PATIENT
  Age: 29 Year
  Sex: Female

DRUGS (3)
  1. OCREVUS [Suspect]
     Active Substance: OCRELIZUMAB
     Indication: Relapsing-remitting multiple sclerosis
     Dosage: SUBSEQUENT DOSE ON 08/MAR/2022, THEN 600 MG
     Route: 042
     Dates: start: 20200929
  2. OCREVUS [Suspect]
     Active Substance: OCRELIZUMAB
     Dosage: EVERY 181 DAYS?ON AN UNKNOWN DATE IN /JUL/2024, SHE RECEIVED HER 10TH MAINTENANCE DOSE.
     Route: 042
     Dates: start: 20210921
  3. COMIRNATY (TOZINAMERAN) [Suspect]
     Active Substance: TOZINAMERAN
     Indication: Product used for unknown indication
     Dosage: THIRD DOSE ON 21/JAN/2022
     Route: 065

REACTIONS (7)
  - Dysaesthesia [Recovered/Resolved]
  - Headache [Recovered/Resolved]
  - COVID-19 [Recovered/Resolved]
  - Vaccination failure [Not Recovered/Not Resolved]
  - Fatigue [Recovered/Resolved]
  - Nasopharyngitis [Recovered/Resolved]
  - Injection site pain [Recovered/Resolved]

NARRATIVE: CASE EVENT DATE: 20201224
